FAERS Safety Report 8916416 (Version 1)
Quarter: 2012Q4

REPORT INFORMATION
  Report Type: 
  Country: US (occurrence: US)
  Receive Date: 20121120
  Receipt Date: 20121120
  Transmission Date: 20130627
  Serious: Yes (Other)
  Sender: FDA-Public Use
  Company Number: US-PFIZER INC-2012289786

PATIENT
  Age: 39 Year
  Sex: Female

DRUGS (19)
  1. ATENOLOL [Suspect]
     Dosage: 50 mg, 2x/day
     Route: 048
  2. CRESTOR [Suspect]
     Dosage: 40mg, Daily
     Route: 048
  3. FUROSEMIDE [Concomitant]
     Dosage: 40mg, Daily
     Route: 065
  4. TAPENTADOL [Concomitant]
     Dosage: 100mg, Daily
     Route: 065
  5. OXYCODONE [Concomitant]
     Dosage: 20 mg, 4x/day
     Route: 065
  6. METHYLFOLATE [Concomitant]
     Dosage: 3-35-2, TWO TIMES DAILY
     Route: 065
  7. ALBUTEROL [Concomitant]
     Dosage: PUFF, WHEN NEEDED
     Route: 065
  8. ALBUTEROL [Concomitant]
     Dosage: NEBULIZER, WHEN NEEDED
     Route: 065
  9. SINGULAIR [Concomitant]
     Dosage: 10mg, Daily
     Route: 065
  10. PAXIL [Concomitant]
     Dosage: 20mg, Daily
     Route: 065
  11. XANAX [Concomitant]
     Dosage: 1 mg, 4x/day
     Route: 065
  12. OLOPATADINE [Concomitant]
     Dosage: TWO TIMES DAILY
     Route: 065
  13. METFORMIN [Concomitant]
     Dosage: 500 mg, 2x/day
     Route: 065
  14. LIRAGLUTIDE (NN2211) [Concomitant]
     Dosage: 6ml, Daily
     Route: 065
  15. LIRAGLUTIDE (NN2211) [Concomitant]
     Dosage: PEN NEEDLES, TWO TIMES DAILY
     Route: 065
  16. MIRAPEX [Concomitant]
     Dosage: 0.5, THREE TIMES DAILY
     Route: 065
  17. LOVAZA [Concomitant]
     Dosage: 1000 mg, 2x/day
     Route: 065
  18. GABAPENTIN [Concomitant]
     Dosage: 400 mg, 3x/day
     Route: 065
  19. PREVACID [Concomitant]
     Dosage: 30mg, Daily
     Route: 065

REACTIONS (3)
  - Road traffic accident [Unknown]
  - Malaise [Unknown]
  - Drug dose omission [Unknown]
